FAERS Safety Report 22149111 (Version 3)
Quarter: 2023Q2

REPORT INFORMATION
  Report Type: Spontaneous
  Country: US (occurrence: US)
  Receive Date: 20230328
  Receipt Date: 20230413
  Transmission Date: 20230722
  Serious: Yes (Hospitalization)
  Sender: FDA-Public Use
  Company Number: US-BIOGEN-2023BI01194785

PATIENT
  Age: 46 Year
  Sex: Female
  Weight: 88 kg

DRUGS (18)
  1. TECFIDERA [Suspect]
     Active Substance: DIMETHYL FUMARATE
     Indication: Multiple sclerosis
     Route: 050
     Dates: start: 20190915, end: 20220111
  2. TECFIDERA [Suspect]
     Active Substance: DIMETHYL FUMARATE
     Route: 050
     Dates: start: 2020, end: 2022
  3. LIORESAL [Concomitant]
     Active Substance: BACLOFEN
     Indication: Product used for unknown indication
     Dosage: TAKE 0.5 TABLETS IN THE MORNING AND 0.5 TABLETS BEFORE BEDTIME
     Route: 050
  4. VITAMIN D3 [Concomitant]
     Active Substance: CHOLECALCIFEROL
     Indication: Product used for unknown indication
     Dosage: TAKE 1,250MCG ONCE A WEEK
     Route: 050
     Dates: start: 20221226, end: 20230402
  5. Levemir (insulin detemir U-100) [Concomitant]
     Indication: Product used for unknown indication
     Dosage: 100UNIT/ML (3ML) INSULIN PEN, 25 UNITS EVERYDAY
     Route: 050
     Dates: start: 20230209, end: 20230402
  6. DICLOFENAC [Concomitant]
     Active Substance: DICLOFENAC
     Indication: Product used for unknown indication
     Dosage: DELAYED RELEASE (E.C), TAKE 1 TABLET IN THE MORNING AND 1 TABLET BEFORE BEDTIME. TAKE WITH FOOD.
     Route: 050
  7. CYMBALTA [Concomitant]
     Active Substance: DULOXETINE HYDROCHLORIDE
     Indication: Product used for unknown indication
     Dosage: DELAYED RELEASE (E.C.), TAKE 1 CAPSULE EVERY MORNING
     Route: 050
     Dates: start: 20230209
  8. Glucophage -XR (metformin-XR) [Concomitant]
     Indication: Product used for unknown indication
     Dosage: TAKE 2 TABLETS IN THE MORNING AND TWO TABLETS BEFORE BEDTIME.
     Route: 050
     Dates: start: 20230209, end: 20230402
  9. PROTONIX [Concomitant]
     Active Substance: PANTOPRAZOLE SODIUM
     Indication: Product used for unknown indication
     Dosage: DELAYED RELEASE (E.C.), TAKE ONE TABLET EVERYDAY
     Route: 050
     Dates: start: 20230209
  10. Proventil HFA (albuterol) [Concomitant]
     Indication: Wheezing
     Dosage: TAKE 2 PUFFS EVERY 4 HOURS AS NEEDED BY INHALATION.
     Route: 050
     Dates: start: 20230320
  11. FLEXERIL [Concomitant]
     Active Substance: CYCLOBENZAPRINE HYDROCHLORIDE
     Indication: Muscle spasms
     Dosage: TAKE 0.5 TABLETS EVERY 8 HOURS AS NEEDED.
     Route: 050
     Dates: start: 20230320
  12. VALIUM [Concomitant]
     Active Substance: DIAZEPAM
     Indication: Anxiety
     Dosage: TAKE 1 TABLET TWO TIMES DAILY AS NEEDED
     Route: 050
  13. MOTRIN [Concomitant]
     Active Substance: IBUPROFEN
     Indication: Product used for unknown indication
     Dosage: TAKE 800MG EVERY 6 HOURS AS NEEDED
     Route: 050
     Dates: end: 20230402
  14. HUMALOG [Concomitant]
     Active Substance: INSULIN LISPRO
     Indication: Product used for unknown indication
     Dosage: 10 UNITS IN THE MORNING AND 10 UNITS AT NOON AND 10 UNITS IN THE EVENING. TAKE BEFORE MEALS.
     Route: 050
     Dates: start: 20230320, end: 20230402
  15. COMBIVENT RESPIMAT [Concomitant]
     Active Substance: ALBUTEROL SULFATE\IPRATROPIUM BROMIDE
     Indication: Product used for unknown indication
     Dosage: TAKE 1 PUFF EVERY FOUR TIMES DAILY
     Route: 050
     Dates: start: 20230320
  16. LOPRESSOR [Concomitant]
     Active Substance: METOPROLOL TARTRATE
     Indication: Product used for unknown indication
     Dosage: TAKE 1 TABLET IN THE MORNING AND 1 TABLET BEFORE BEDTIME
     Route: 050
     Dates: start: 20230314, end: 20230402
  17. Nicotrol (nicotine) [Concomitant]
     Indication: Product used for unknown indication
     Dosage: 1 PATCH EVERY 24 HOURS
     Route: 050
     Dates: start: 20230315, end: 20230402
  18. Roxicodone (oxycodone) [Concomitant]
     Indication: Pain
     Dosage: TAKE 1 TABLET EVERY 6 HOURS AS NEEDED.
     Route: 050
     Dates: start: 20230320

REACTIONS (6)
  - Non-small cell lung cancer metastatic [Unknown]
  - COVID-19 pneumonia [Unknown]
  - Pulmonary mass [Unknown]
  - Lymphadenopathy mediastinal [Unknown]
  - Pericardial effusion [Unknown]
  - Acute myocardial infarction [Unknown]

NARRATIVE: CASE EVENT DATE: 20230301
